FAERS Safety Report 12861347 (Version 4)
Quarter: 2016Q4

REPORT INFORMATION
  Report Type: Spontaneous
  Country: US (occurrence: US)
  Receive Date: 20161019
  Receipt Date: 20161206
  Transmission Date: 20170207
  Serious: Yes (Hospitalization)
  Sender: FDA-Public Use
  Company Number: US-JNJFOC-20161014904

PATIENT
  Age: 67 Year
  Sex: Female
  Weight: 82 kg

DRUGS (9)
  1. OLARATUMAB [Suspect]
     Active Substance: OLARATUMAB
     Indication: LIPOSARCOMA
     Dosage: ON DAY 1 AND 8 OF CYCLE
     Route: 042
     Dates: end: 20160420
  2. OLARATUMAB [Suspect]
     Active Substance: OLARATUMAB
     Indication: LIPOSARCOMA
     Route: 042
  3. DOXIL [Suspect]
     Active Substance: DOXORUBICIN HYDROCHLORIDE
     Indication: LIPOSARCOMA
     Route: 042
     Dates: start: 20160111
  4. DOXIL [Suspect]
     Active Substance: DOXORUBICIN HYDROCHLORIDE
     Indication: LIPOSARCOMA
     Route: 042
  5. OLARATUMAB [Suspect]
     Active Substance: OLARATUMAB
     Indication: LIPOSARCOMA
     Route: 042
     Dates: start: 20160121
  6. OLARATUMAB [Suspect]
     Active Substance: OLARATUMAB
     Indication: LIPOSARCOMA
     Route: 042
  7. DEXRAZOXANE. [Concomitant]
     Active Substance: DEXRAZOXANE
     Route: 065
  8. DOXIL [Suspect]
     Active Substance: DOXORUBICIN HYDROCHLORIDE
     Indication: LIPOSARCOMA
     Route: 042
     Dates: start: 20160511
  9. DOXIL [Suspect]
     Active Substance: DOXORUBICIN HYDROCHLORIDE
     Indication: LIPOSARCOMA
     Dosage: ON DAY 1 AND 8 OF 21 DAY CYCLE
     Route: 042
     Dates: end: 20160420

REACTIONS (5)
  - Febrile neutropenia [Unknown]
  - Fistula [Recovered/Resolved]
  - Product use issue [Unknown]
  - Off label use [Unknown]
  - Enterocutaneous fistula [Recovered/Resolved]

NARRATIVE: CASE EVENT DATE: 20160501
